FAERS Safety Report 21387533 (Version 1)
Quarter: 2022Q3

REPORT INFORMATION
  Report Type: Spontaneous
  Country: FR (occurrence: None)
  Receive Date: 20220928
  Receipt Date: 20220928
  Transmission Date: 20221027
  Serious: Yes (Hospitalization)
  Sender: FDA-Public Use
  Company Number: FR-ROCHE-3189266

PATIENT
  Age: 22 Year
  Sex: Male

DRUGS (5)
  1. RIVOTRIL [Suspect]
     Active Substance: CLONAZEPAM
     Indication: Drug dependence
     Dosage: RIVOTRIL 2 MG (1.1.1)
     Route: 065
     Dates: start: 202205
  2. RIVOTRIL [Suspect]
     Active Substance: CLONAZEPAM
     Route: 065
     Dates: start: 202206
  3. LYRICA [Suspect]
     Active Substance: PREGABALIN
     Indication: Drug dependence
     Route: 065
     Dates: start: 202205
  4. LYRICA [Suspect]
     Active Substance: PREGABALIN
     Route: 065
     Dates: start: 202207
  5. COCAINE [Suspect]
     Active Substance: COCAINE
     Indication: Product used for unknown indication
     Dosage: ALMOST EVERY DAY SINCE THEN 5 YEARS
     Route: 045

REACTIONS (2)
  - Drug use disorder [Not Recovered/Not Resolved]
  - Seizure [Recovered/Resolved]
